FAERS Safety Report 8380243-5 (Version None)
Quarter: 2012Q2

REPORT INFORMATION
  Report Type: 
  Country: None (occurrence: None)
  Receive Date: 20120523
  Receipt Date: 20120516
  Transmission Date: 20120825
  Serious: Yes (Hospitalization, Other)
  Sender: FDA-Public Use
  Company Number: PHHY2012FR025319

PATIENT
  Age: 49 Year
  Sex: Female

DRUGS (6)
  1. TROSPIUM CHLORIDE [Concomitant]
  2. BACLOFEN [Concomitant]
  3. GILENYA [Suspect]
     Indication: RELAPSING-REMITTING MULTIPLE SCLEROSIS
     Dosage: 0.5 MG, QD
     Route: 048
     Dates: start: 20120306
  4. METEOXANE [Concomitant]
  5. PAROXETINE HYDROCHLORIDE [Concomitant]
  6. BETA BLOCKING AGENTS [Concomitant]

REACTIONS (11)
  - EPILEPSY [None]
  - KORSAKOFF'S SYNDROME [None]
  - INFLAMMATION [None]
  - TROPONIN INCREASED [None]
  - PROCALCITONIN INCREASED [None]
  - EJECTION FRACTION DECREASED [None]
  - MYOCARDITIS [None]
  - LOSS OF CONSCIOUSNESS [None]
  - CARDIAC FAILURE ACUTE [None]
  - CARDIAC OUTPUT DECREASED [None]
  - C-REACTIVE PROTEIN INCREASED [None]
